FAERS Safety Report 9374592 (Version 3)
Quarter: 2013Q3

REPORT INFORMATION
  Report Type: Spontaneous
  Country: CA (occurrence: CA)
  Receive Date: 20130628
  Receipt Date: 20130705
  Transmission Date: 20140515
  Serious: Yes (Other)
  Sender: FDA-Public Use
  Company Number: CA-ROCHE-1240599

PATIENT
  Sex: Female

DRUGS (6)
  1. XELODA [Suspect]
     Indication: BREAST CANCER STAGE IV
     Route: 065
     Dates: start: 201203
  2. XELODA [Interacting]
     Route: 065
     Dates: start: 201306
  3. TAMOXIFEN [Interacting]
     Indication: BREAST CANCER
     Route: 065
     Dates: start: 201304
  4. CALTRATE [Concomitant]
  5. ATIVAN [Concomitant]
     Dosage: AT BEDTIME
     Route: 065
  6. XGEVA [Concomitant]
     Indication: METASTASES TO BONE
     Route: 058
     Dates: start: 20130404

REACTIONS (11)
  - Drug ineffective [Unknown]
  - Tumour marker test [Not Recovered/Not Resolved]
  - Drug interaction [Unknown]
  - Palmar-plantar erythrodysaesthesia syndrome [Recovering/Resolving]
  - Fatigue [Recovering/Resolving]
  - White blood cell count decreased [Recovering/Resolving]
  - Neutrophil count decreased [Recovering/Resolving]
  - Hypoaesthesia [Recovered/Resolved]
  - Hypoaesthesia [Recovered/Resolved]
  - Paraesthesia [Recovered/Resolved]
  - Paraesthesia [Recovered/Resolved]
